FAERS Safety Report 4382554-7 (Version None)
Quarter: 2004Q2

REPORT INFORMATION
  Report Type: 
  Country: None (occurrence: None)
  Receive Date: 20040617
  Receipt Date: 20040611
  Transmission Date: 20050107
  Serious: Yes (Disabling)
  Sender: FDA-Public Use
  Company Number: A02200401465

PATIENT
  Age: 58 Year
  Sex: Male

DRUGS (8)
  1. PLAVIX [Suspect]
     Indication: ARTERIOPATHIC DISEASE
     Dosage: 75 MG, OD, ORAL
     Route: 048
     Dates: end: 20040101
  2. ISOPTIN [Concomitant]
  3. IKOREL (NICORANDIL) [Concomitant]
  4. LASIX [Concomitant]
  5. ZESTRIL [Concomitant]
  6. DIASTABOL (MIGLITOL) [Concomitant]
  7. DEROXAT (PAROXETINE HYDROCHLORIDE) [Concomitant]
  8. INSULINE (INSULIN) [Concomitant]

REACTIONS (2)
  - DYSPNOEA EXERTIONAL [None]
  - SENSE OF OPPRESSION [None]
